FAERS Safety Report 4846064-2 (Version None)
Quarter: 2005Q4

REPORT INFORMATION
  Report Type: 
  Country: None (occurrence: None)
  Receive Date: 20051130
  Receipt Date: 20051116
  Transmission Date: 20060501
  Serious: Yes (Hospitalization, Disabling)
  Sender: FDA-Public Use
  Company Number: 2005US001578

PATIENT
  Age: 46 Year
  Sex: Male
  Weight: 89.1 kg

DRUGS (10)
  1. PROGRAF [Suspect]
     Indication: PROPHYLAXIS AGAINST TRANSPLANT REJECTION
     Dosage: SEE IMAGE
     Dates: start: 20041201
  2. NORVASC [Suspect]
     Dosage: 10 MG, UID/QD, ORAL
     Route: 048
  3. DIOVAN [Concomitant]
  4. PREDNISONE [Concomitant]
  5. MYCOPHENOLATE MOFETIL (MYCOPHENOLATE MOFETIL) [Concomitant]
  6. BACTRIM DS [Concomitant]
  7. ACYCLOVIR [Concomitant]
  8. MAGNESIUM HYDROXIDE TAB [Concomitant]
  9. PROTONIX [Concomitant]
  10. MYCELEX [Concomitant]

REACTIONS (7)
  - ALTERED VISUAL DEPTH PERCEPTION [None]
  - INTRACRANIAL PRESSURE INCREASED [None]
  - NIGHT BLINDNESS [None]
  - OPTIC NEUROPATHY [None]
  - PAPILLOEDEMA [None]
  - PHOTOPHOBIA [None]
  - VISION BLURRED [None]
